FAERS Safety Report 5839417-7 (Version None)
Quarter: 2008Q3

REPORT INFORMATION
  Report Type: 
  Country: None (occurrence: None)
  Receive Date: 20080806
  Receipt Date: 20080723
  Transmission Date: 20090109
  Serious: Yes (Hospitalization)
  Sender: FDA-Public Use
  Company Number: DSM-2008-00676

PATIENT
  Age: 96 Year
  Sex: Female

DRUGS (7)
  1. OLMESARTAN MEDOXOMIL [Suspect]
     Indication: HYPERTENSION
     Dosage: 10 MG (10 MG, 1 IN 1 D), ORAL
     Route: 048
     Dates: start: 20080420, end: 20080509
  2. FORTZAAR (HYDROCHLOROTHIAZIDE, LOSARTAN POTASSIUM) (HYDROCHLOROTHIAZID [Suspect]
     Indication: HYPERTENSION
     Dosage: 100/25 MG (1 IN 1 D), ORAL
     Route: 048
     Dates: end: 20080509
  3. OMEPRAZOLE [Concomitant]
  4. CARDURAN NEO (DOXAZOSIN MESILATE) [Concomitant]
  5. OPTOVITE B12 (CYANOCOBALAMIN) [Concomitant]
  6. PLAVIX [Concomitant]
  7. EMCORETIC (HYDROCHLOROTHIAZIDE, BISOPROLOL FUMARATE) (HYDROCHLOROTHIAZ [Concomitant]

REACTIONS (5)
  - ASTHENIA [None]
  - DIARRHOEA [None]
  - DRUG INTERACTION [None]
  - RENAL CYST [None]
  - RENAL FAILURE ACUTE [None]
